FAERS Safety Report 8287671-7 (Version None)
Quarter: 2012Q2

REPORT INFORMATION
  Report Type: 
  Country: None (occurrence: None)
  Receive Date: 20120416
  Receipt Date: 20120413
  Transmission Date: 20120825
  Serious: Yes (Life-Threatening, Hospitalization, Other)
  Sender: FDA-Public Use
  Company Number: PHFR2012IE001757

PATIENT
  Sex: Male

DRUGS (2)
  1. CLOZARIL [Suspect]
     Indication: SCHIZOPHRENIA
     Route: 048
     Dates: start: 19960423
  2. CLOZARIL [Suspect]
     Dosage: 500 MG, (300MG NIGHT AND 200MG MORNING)
     Route: 048

REACTIONS (3)
  - UNRESPONSIVE TO STIMULI [None]
  - INCORRECT DOSE ADMINISTERED [None]
  - DEPRESSION [None]
